FAERS Safety Report 24416729 (Version 3)
Quarter: 2024Q4

REPORT INFORMATION
  Report Type: Spontaneous
  Country: FR (occurrence: FR)
  Receive Date: 20241009
  Receipt Date: 20241127
  Transmission Date: 20250115
  Serious: No
  Sender: TOLMAR
  Company Number: FR-RECORDATI-2024007281

PATIENT
  Sex: Male

DRUGS (2)
  1. ELIGARD [Suspect]
     Active Substance: LEUPROLIDE ACETATE
     Indication: Prostate cancer
     Dosage: UNK
  2. ELIGARD [Suspect]
     Active Substance: LEUPROLIDE ACETATE
     Indication: Prostate cancer
     Dosage: UNK

REACTIONS (4)
  - Product preparation error [Unknown]
  - Product administration error [Unknown]
  - Drug ineffective [Unknown]
  - Blood testosterone abnormal [Unknown]
